FAERS Safety Report 10182546 (Version 2)
Quarter: 2014Q2

REPORT INFORMATION
  Report Type: Spontaneous
  Country: US (occurrence: None)
  Receive Date: 20140516
  Receipt Date: 20140522
  Transmission Date: 20141212
  Serious: Yes (Hospitalization)
  Sender: FDA-Public Use
  Company Number: UTC-047720

PATIENT
  Age: 39 Year
  Sex: Female
  Weight: 73.5 kg

DRUGS (4)
  1. REMODULIN [Suspect]
     Indication: COR PULMONALE CHRONIC
     Dosage: 0.04 UG/KG/MIN, CONTINUING, IV DRIP
     Route: 041
     Dates: start: 20071129
  2. REVATIO (SILDENAFIL CITRATE) [Concomitant]
  3. COUMADIN (WARFARIN SODIUM) [Concomitant]
  4. LETAIRIS (AMBRISENTAN) [Concomitant]

REACTIONS (3)
  - Device malfunction [None]
  - Syncope [None]
  - Weight increased [None]
